FAERS Safety Report 9248157 (Version 1)
Quarter: 2013Q1

REPORT INFORMATION
  Report Type: Spontaneous
  Country: US (occurrence: None)
  Receive Date: 20130305
  Receipt Date: 20130305
  Transmission Date: 20140127
  Serious: Yes (Hospitalization)
  Sender: FDA-Public Use
  Company Number: 163-21880-12092248

PATIENT
  Age: 51 Year
  Sex: Male

DRUGS (9)
  1. REVLIMID [Suspect]
     Indication: PLASMA CELL MYELOMA
     Dosage: 1 IN 2 D
     Route: 048
  2. PROTONIX [Concomitant]
  3. DEXAMETHASONE [Concomitant]
  4. PREDNISONE [Concomitant]
  5. MULTIVITAMINS [Concomitant]
  6. LACTOBACILLUS [Concomitant]
  7. NEURONTIN [Concomitant]
  8. VALTREX [Concomitant]
  9. ASA [Concomitant]

REACTIONS (2)
  - Diarrhoea [None]
  - Vomiting [None]
